FAERS Safety Report 4357658-5 (Version None)
Quarter: 2004Q2

REPORT INFORMATION
  Report Type: 
  Country: None (occurrence: None)
  Receive Date: 20040511
  Receipt Date: 20040426
  Transmission Date: 20050107
  Serious: Yes (Hospitalization, Other)
  Sender: FDA-Public Use
  Company Number: 6008607

PATIENT

DRUGS (2)
  1. CONCOR (BISOPROLOL FUMARATE) [Suspect]
     Dosage: SINCE 1 MONTH
  2. ACETYLSALICYLIC ACID SRT [Concomitant]

REACTIONS (4)
  - IMMUNOGLOBULINS INCREASED [None]
  - PERICARDIAL EFFUSION [None]
  - PLEURAL EFFUSION [None]
  - SYSTEMIC LUPUS ERYTHEMATOSUS [None]
